FAERS Safety Report 12947663 (Version 1)
Quarter: 2016Q4

REPORT INFORMATION
  Report Type: Spontaneous
  Country: US (occurrence: US)
  Receive Date: 20161116
  Receipt Date: 20161116
  Transmission Date: 20170207
  Serious: Yes (Other)
  Sender: FDA-Public Use
  Company Number: US-BAYER-2016-212337

PATIENT
  Sex: Female
  Weight: 65.77 kg

DRUGS (2)
  1. MIRENA [Suspect]
     Active Substance: LEVONORGESTREL
     Dosage: 20 MCG/24HR, CONT
     Route: 015
  2. MIRENA [Suspect]
     Active Substance: LEVONORGESTREL
     Dosage: 20 MCG/24HR, CONT
     Route: 015
     Dates: start: 20090823

REACTIONS (6)
  - Embedded device [Not Recovered/Not Resolved]
  - Drug ineffective [None]
  - Pregnancy with contraceptive device [None]
  - Abortion spontaneous [Recovered/Resolved with Sequelae]
  - Salpingectomy [Recovered/Resolved with Sequelae]
  - Device difficult to use [Not Recovered/Not Resolved]

NARRATIVE: CASE EVENT DATE: 20090820
